FAERS Safety Report 4617507-4 (Version None)
Quarter: 2005Q1

REPORT INFORMATION
  Report Type: 
  Country: None (occurrence: None)
  Receive Date: 20050324
  Receipt Date: 20050318
  Transmission Date: 20050727
  Serious: Yes (Life-Threatening, Hospitalization)
  Sender: FDA-Public Use
  Company Number: PHEH2005US03363

PATIENT
  Age: 77 Year
  Sex: Male
  Weight: 72 kg

DRUGS (3)
  1. LOTREL [Suspect]
     Indication: HYPERTENSION
     Dosage: 10 MG AMLOD/20 MG BENAZ QD
     Dates: start: 20020309, end: 20050309
  2. FLOMAX [Concomitant]
     Dosage: 0.4 MG, UNK
  3. CELEBREX [Concomitant]
     Dosage: 200 MG, QD

REACTIONS (11)
  - ANGIONEUROTIC OEDEMA [None]
  - BALANCE DISORDER [None]
  - DYSPNOEA [None]
  - HYPOACUSIS [None]
  - INTUBATION [None]
  - LOCAL SWELLING [None]
  - RESPIRATORY FAILURE [None]
  - SWELLING FACE [None]
  - SWOLLEN TONGUE [None]
  - THROAT IRRITATION [None]
  - VISUAL ACUITY REDUCED [None]
